FAERS Safety Report 6427364-1 (Version None)
Quarter: 2009Q4

REPORT INFORMATION
  Report Type: 
  Country: None (occurrence: None)
  Receive Date: 20091030
  Receipt Date: 20091022
  Transmission Date: 20100525
  Serious: Yes (Hospitalization)
  Sender: FDA-Public Use
  Company Number: 2009AL006781

PATIENT
  Age: 68 Year
  Sex: Female

DRUGS (9)
  1. METFORMIN HCL [Suspect]
  2. HYDROCHLOROTHIAZIDE [Concomitant]
  3. ASPIRIN [Concomitant]
  4. PRILOSEC [Concomitant]
  5. FUROSEMIDE [Concomitant]
  6. EZETIMIBE/SIMVASTATIN [Concomitant]
  7. MTP [Concomitant]
  8. NIFEDIPINE [Concomitant]
  9. INSULIN [Concomitant]

REACTIONS (13)
  - BLOOD CHLORIDE DECREASED [None]
  - BLOOD GLUCOSE DECREASED [None]
  - BLOOD POTASSIUM INCREASED [None]
  - BLOOD SODIUM DECREASED [None]
  - CHILLS [None]
  - FLANK PAIN [None]
  - GASTROENTERITIS [None]
  - HAEMOGLOBIN DECREASED [None]
  - HYPOVOLAEMIA [None]
  - METABOLIC ACIDOSIS [None]
  - RENAL FAILURE ACUTE [None]
  - TACHYPNOEA [None]
  - VOMITING [None]
